FAERS Safety Report 4854336-0 (Version None)
Quarter: 2005Q4

REPORT INFORMATION
  Report Type: 
  Country: None (occurrence: None)
  Receive Date: 20051213
  Receipt Date: 20051213
  Transmission Date: 20060501
  Serious: Yes (Hospitalization)
  Sender: FDA-Public Use
  Company Number: None

PATIENT
  Age: 56 Year
  Sex: Male
  Weight: 119.7496 kg

DRUGS (8)
  1. LISINOPRIL [Suspect]
     Indication: HYPERTENSION
     Dosage: 20 MG DAILY PO
     Route: 048
     Dates: start: 20050511, end: 20050910
  2. ACETAMINOPHEN [Concomitant]
  3. ALBUTEROL [Concomitant]
  4. CAPSAICIN [Concomitant]
  5. FLUTICASONE [Concomitant]
  6. FORMOTEROL [Concomitant]
  7. GEMFIBROZIL [Concomitant]
  8. HCTZ 25/TRIAMTERENE [Concomitant]

REACTIONS (1)
  - ANGIONEUROTIC OEDEMA [None]
